FAERS Safety Report 8998352 (Version 2)
Quarter: 2013Q1

REPORT INFORMATION
  Report Type: Spontaneous
  Country: JP (occurrence: JP)
  Receive Date: 20130102
  Receipt Date: 20130129
  Transmission Date: 20140127
  Serious: Yes (Hospitalization)
  Sender: FDA-Public Use
  Company Number: JP-ASTRAZENECA-2012SE96102

PATIENT
  Age: 13 Year
  Sex: Male

DRUGS (12)
  1. MEROPEN [Suspect]
     Indication: DIVERTICULITIS
     Route: 042
     Dates: start: 20120511, end: 20120515
  2. CEFMETAZOLE SODIUM [Suspect]
     Indication: DIVERTICULITIS
     Route: 042
     Dates: start: 20120510, end: 20120511
  3. SOLDEM 1 [Concomitant]
     Indication: THERAPEUTIC PROCEDURE
     Dates: start: 20120509, end: 20120509
  4. SOLDEM 3AG [Concomitant]
     Indication: FLUID REPLACEMENT
     Dates: start: 20120510, end: 20120510
  5. SOLDEM 3AG [Concomitant]
     Indication: FLUID REPLACEMENT
     Dates: start: 20120512, end: 20120514
  6. SOLDEM 3AG [Concomitant]
     Indication: FLUID REPLACEMENT
     Dates: start: 20120521, end: 20120521
  7. SOLDEM 3AG [Concomitant]
     Indication: FLUID REPLACEMENT
     Dates: start: 20120522, end: 20120522
  8. SOSEGON [Concomitant]
     Indication: PAIN MANAGEMENT
     Dates: start: 20120510, end: 20120510
  9. PRIMPERAN [Concomitant]
     Indication: NAUSEA
     Dates: start: 20120510, end: 20120510
  10. GASTER [Concomitant]
     Indication: NUTRITIONAL SUPPLEMENTATION
     Dates: start: 20120510, end: 20120522
  11. VITAMEDIN [Concomitant]
     Indication: NUTRITIONAL SUPPLEMENTATION
     Dates: start: 20120510, end: 20120522
  12. DAIKENCHOTO [Concomitant]
     Indication: ILEUS PARALYTIC
     Route: 048
     Dates: start: 20120511, end: 20120530

REACTIONS (1)
  - Pseudomembranous colitis [Recovered/Resolved]
